FAERS Safety Report 5358521-3 (Version None)
Quarter: 2007Q2

REPORT INFORMATION
  Report Type: 
  Country: None (occurrence: None)
  Receive Date: 20070614
  Receipt Date: 20070614
  Transmission Date: 20071010
  Serious: Yes (Life-Threatening, Hospitalization)
  Sender: FDA-Public Use
  Company Number: None

PATIENT
  Sex: Female
  Weight: 90.7194 kg

DRUGS (1)
  1. REMODULIN [Suspect]
     Dosage: 82NG/KG/MIN, 72CC/24HR
     Dates: start: 20060401

REACTIONS (4)
  - CATHETER RELATED INFECTION [None]
  - CHILLS [None]
  - PYREXIA [None]
  - SEPSIS [None]
